FAERS Safety Report 6785889-3 (Version None)
Quarter: 2010Q2

REPORT INFORMATION
  Report Type: 
  Country: None (occurrence: None)
  Receive Date: 20100622
  Receipt Date: 20100622
  Transmission Date: 20101027
  Serious: Yes (Hospitalization)
  Sender: FDA-Public Use
  Company Number: None

PATIENT
  Age: 18 Year
  Sex: Female
  Weight: 81.6475 kg

DRUGS (1)
  1. CLONAZEPAM [Suspect]

REACTIONS (4)
  - INTENTIONAL SELF-INJURY [None]
  - LACERATION [None]
  - SCAR [None]
  - THERMAL BURN [None]
